FAERS Safety Report 17984658 (Version 1)
Quarter: 2020Q3

REPORT INFORMATION
  Report Type: Spontaneous
  Country: US (occurrence: US)
  Receive Date: 20200706
  Receipt Date: 20200706
  Transmission Date: 20201103
  Serious: No
  Sender: FDA-Public Use
  Company Number: US-SA-2020SA171860

PATIENT

DRUGS (1)
  1. KEVZARA [Suspect]
     Active Substance: SARILUMAB
     Indication: ARTHROPATHY
     Dosage: 200 MG, QOW
     Route: 058
     Dates: start: 20200318, end: 2020

REACTIONS (5)
  - Abdominal pain [Unknown]
  - Condition aggravated [Unknown]
  - Arthritis [Unknown]
  - Connective tissue disorder [Unknown]
  - Ulcer [Unknown]

NARRATIVE: CASE EVENT DATE: 2020
